FAERS Safety Report 6790751-6 (Version None)
Quarter: 2010Q2

REPORT INFORMATION
  Report Type: 
  Country: None (occurrence: None)
  Receive Date: 20100520
  Receipt Date: 20090528
  Transmission Date: 20101027
  Serious: Yes (Other)
  Sender: FDA-Public Use
  Company Number: 2008060895

PATIENT
  Age: 50 Year
  Sex: Female

DRUGS (7)
  1. MEDROXYPROGESTERONE ACETATE [Suspect]
     Indication: HORMONE REPLACEMENT THERAPY
     Dosage: 10 MG, 1X/DAY, ORAL
     Route: 048
     Dates: start: 19981001, end: 19991101
  2. PREMARIN [Suspect]
     Indication: HORMONE REPLACEMENT THERAPY
     Dosage: 0.3 MG ; 0.625 MG, 1X/DAY
     Dates: start: 19951001, end: 19951101
  3. PREMARIN [Suspect]
     Indication: HORMONE REPLACEMENT THERAPY
     Dosage: 0.3 MG ; 0.625 MG, 1X/DAY
     Dates: start: 19981001, end: 19991101
  4. ALPRAZOLAM [Concomitant]
  5. CYCLOBENZAPRINE [Concomitant]
  6. ZOLOFT [Concomitant]
  7. FLEXERIL [Concomitant]

REACTIONS (1)
  - BREAST CANCER FEMALE [None]
